FAERS Safety Report 8142121-6 (Version None)
Quarter: 2012Q1

REPORT INFORMATION
  Report Type: 
  Country: None (occurrence: None)
  Receive Date: 20120216
  Receipt Date: 20120214
  Transmission Date: 20120608
  Serious: Yes (Other)
  Sender: FDA-Public Use
  Company Number: US-TEVA-322716USA

PATIENT
  Sex: Female
  Weight: 59.928 kg

DRUGS (4)
  1. PREDNISONE [Concomitant]
  2. TREANDA [Suspect]
     Indication: LYMPHOMA
     Route: 042
     Dates: start: 20111001
  3. RITUXIMAB [Concomitant]
  4. DIPHENHYDRAMINE HCL [Concomitant]

REACTIONS (11)
  - DIZZINESS [None]
  - RASH [None]
  - METAMORPHOPSIA [None]
  - EYE SWELLING [None]
  - FUNGAL INFECTION [None]
  - BURNING SENSATION MUCOSAL [None]
  - HYPOTENSION [None]
  - ARTHRALGIA [None]
  - PRURITUS [None]
  - CHEST PAIN [None]
  - BLOOD PRESSURE INCREASED [None]
